FAERS Safety Report 8381443-0 (Version None)
Quarter: 2012Q2

REPORT INFORMATION
  Report Type: 
  Country: None (occurrence: None)
  Receive Date: 20120523
  Receipt Date: 20120518
  Transmission Date: 20120825
  Serious: Yes (Other)
  Sender: FDA-Public Use
  Company Number: US-ABBOTT-12P-163-0925356-00

PATIENT
  Sex: Male
  Weight: 9.988 kg

DRUGS (7)
  1. PENICILLIN V POTASSIUM [Concomitant]
     Indication: PRODUCT USED FOR UNKNOWN INDICATION
  2. PRILOSEC [Concomitant]
     Indication: PRODUCT USED FOR UNKNOWN INDICATION
  3. HUMIRA [Suspect]
     Indication: HIDRADENITIS
     Dates: start: 20110501, end: 20111001
  4. LISINOPRIL [Concomitant]
     Indication: PRODUCT USED FOR UNKNOWN INDICATION
     Dosage: DAILY, 25/10 MG
  5. PERCOCET [Concomitant]
     Indication: PRODUCT USED FOR UNKNOWN INDICATION
  6. DOXYCYCLINE [Concomitant]
     Indication: PRODUCT USED FOR UNKNOWN INDICATION
  7. ULTRAM [Concomitant]
     Indication: PRODUCT USED FOR UNKNOWN INDICATION

REACTIONS (8)
  - DERMAL CYST [None]
  - RHEUMATOID FACTOR INCREASED [None]
  - SKIN DISORDER [None]
  - IMPAIRED HEALING [None]
  - RASH PAPULAR [None]
  - RASH PRURITIC [None]
  - SKIN EXFOLIATION [None]
  - DRUG INEFFECTIVE [None]
